FAERS Safety Report 6736133-4 (Version None)
Quarter: 2010Q2

REPORT INFORMATION
  Report Type: 
  Country: None (occurrence: None)
  Receive Date: 20100521
  Receipt Date: 20100514
  Transmission Date: 20101027
  Serious: Yes (Hospitalization, Other)
  Sender: FDA-Public Use
  Company Number: US-ROXANE LABORATORIES, INC.-2010-RO-00574RO

PATIENT
  Age: 16 Year
  Sex: Female

DRUGS (15)
  1. METHOTREXATE [Suspect]
     Indication: ACUTE LYMPHOCYTIC LEUKAEMIA
  2. ONDANSETRON [Suspect]
     Indication: NAUSEA
  3. MORPHINE [Suspect]
     Indication: PAIN
  4. MORPHINE [Suspect]
  5. LEUCOVORIN CALCIUM [Suspect]
     Indication: DRUG TOXICITY
     Route: 042
  6. LONARID [Suspect]
     Indication: PAIN
  7. VINCRISTINE [Suspect]
     Indication: ACUTE LYMPHOCYTIC LEUKAEMIA
  8. VINCRISTINE [Suspect]
     Route: 042
  9. SODIUM BICARBONATE [Suspect]
     Indication: PH URINE ABNORMAL
  10. SILVADENE [Suspect]
     Indication: SUNBURN
     Route: 061
  11. PENICILLIN G BENZATHINE [Suspect]
     Indication: PHARYNGITIS STREPTOCOCCAL
     Route: 030
  12. PEGASPARAGINASE [Suspect]
     Indication: ACUTE LYMPHOCYTIC LEUKAEMIA
     Route: 030
  13. PANTOPRAZOLE [Suspect]
     Indication: GASTROINTESTINAL HAEMORRHAGE
     Route: 042
  14. CEFEPIME [Suspect]
     Indication: FEBRILE NEUTROPENIA
  15. VANCOMYCIN [Suspect]
     Indication: FEBRILE NEUTROPENIA

REACTIONS (12)
  - DEHYDRATION [None]
  - DRUG INEFFECTIVE [None]
  - DRUG TOXICITY [None]
  - DUODENITIS [None]
  - FEBRILE NEUTROPENIA [None]
  - GASTRITIS [None]
  - PHARYNGITIS STREPTOCOCCAL [None]
  - PHOTOSENSITIVITY REACTION [None]
  - RENAL FAILURE ACUTE [None]
  - SKIN LESION [None]
  - STAPHYLOCOCCAL INFECTION [None]
  - STOMATITIS [None]
